FAERS Safety Report 7134712-6 (Version None)
Quarter: 2010Q4

REPORT INFORMATION
  Report Type: 
  Country: None (occurrence: None)
  Receive Date: 20101130
  Receipt Date: 20101130
  Transmission Date: 20110411
  Serious: Yes (Other)
  Sender: FDA-Public Use
  Company Number: None

PATIENT
  Age: 27 Year
  Sex: Female
  Weight: 55.9 kg

DRUGS (2)
  1. GEODON [Suspect]
     Indication: BIPOLAR DISORDER
     Dosage: 100 MG DIVIDED AM AND PM ORAL
     Route: 048
     Dates: start: 20100105
  2. LITHIUM 300 MG. UNKNOWN [Suspect]
     Indication: BIPOLAR DISORDER
     Dosage: 900 MG DIVIDED AM AND PM ORAL
     Route: 048
     Dates: start: 20061006

REACTIONS (6)
  - ANXIETY [None]
  - DYSARTHRIA [None]
  - EPISTAXIS [None]
  - HEADACHE [None]
  - RASH [None]
  - SOMNOLENCE [None]
